FAERS Safety Report 17083688 (Version 2)
Quarter: 2019Q4

REPORT INFORMATION
  Report Type: Spontaneous
  Country: DE (occurrence: DE)
  Receive Date: 20191127
  Receipt Date: 20191203
  Transmission Date: 20200122
  Serious: Yes (Hospitalization)
  Sender: FDA-Public Use
  Company Number: DE-MYLANLABS-2019M1115819

PATIENT
  Age: 81 Year
  Sex: Female

DRUGS (19)
  1. ERYTHROPOIETIN [Concomitant]
     Active Substance: ERYTHROPOIETIN
     Dosage: ON DIALYSIS; 1-0-0-0 MON, WED, FRI
     Route: 042
  2. FERRLECIT                          /00023541/ [Concomitant]
     Dosage: ON DIALYSIS;1-0-0-0;MO,AMPOULES
     Route: 042
  3. PANTOPRAZOL                        /01263201/ [Concomitant]
     Active Substance: PANTOPRAZOLE
     Dosage: 40 MILLIGRAM (1-0-0-0 )
  4. OSVAREN [Concomitant]
     Active Substance: CALCIUM ACETATE\MAGNESIUM CARBONATE
     Dosage: NK MG, 2-2-2-0
  5. GLURENORM [Concomitant]
     Active Substance: GLIQUIDONE
     Dosage: NK MG, 1-0-0-0
  6. CLOPIDOGREL [Concomitant]
     Active Substance: CLOPIDOGREL BISULFATE
     Dosage: 75 MG, 0-0-1-0
  7. NITROLINGUAL [Concomitant]
     Active Substance: NITROGLYCERIN
     Dosage: NK MG, 0-0-1-0
  8. DEKRISTOL [Concomitant]
     Active Substance: CHOLECALCIFEROL
     Dosage: 20000 IE,ON DIALYSIS;MON/1XMONTH
  9. ENALAPRIL [Concomitant]
     Active Substance: ENALAPRIL
     Dosage: 10 MG, 1-0-1-0
  10. MIMPARA [Concomitant]
     Active Substance: CINACALCET HYDROCHLORIDE
     Dosage: 30 MILLIGRAM, QD (0-0-1-0 )
  11. NITRENDIPIN [Concomitant]
     Active Substance: NITRENDIPINE
     Dosage: 10 MG, 1-1-1-1
  12. ASPIRIN. [Concomitant]
     Active Substance: ASPIRIN
     Dosage: 100 MILLIGRAM, QD (1-0-0-0)
  13. IBUPROFEN. [Concomitant]
     Active Substance: IBUPROFEN
     Dosage: 600 MILLIGRAM(AS NEEDED)
  14. METAMIZOL                          /06276701/ [Concomitant]
     Active Substance: METAMIZOLE
     Dosage: 30 DROPS AS NEEDED, DROPS
  15. CANDESARTAN. [Concomitant]
     Active Substance: CANDESARTAN
     Dosage: 8 MG, 2-0-2-0
  16. DREISAVIT N [Concomitant]
     Dosage: NK MG, TUE, THU, SAT, SAT
  17. METOPROLOL. [Suspect]
     Active Substance: METOPROLOL
     Indication: PRODUCT USED FOR UNKNOWN INDICATION
     Dosage: 47.5 MILLIGRAM (2-0-1-0 )
  18. SIMVASTATIN. [Concomitant]
     Active Substance: SIMVASTATIN
     Dosage: 80 MG, 0-0-0.5-0
  19. RENVELA [Concomitant]
     Active Substance: SEVELAMER CARBONATE
     Dosage: 800 MG, 1-1-1-0

REACTIONS (3)
  - Mobility decreased [Unknown]
  - Pain in extremity [Unknown]
  - Condition aggravated [Unknown]
